FAERS Safety Report 8985607 (Version 3)
Quarter: 2013Q1

REPORT INFORMATION
  Report Type: Spontaneous
  Country: BR (occurrence: BR)
  Receive Date: 20121226
  Receipt Date: 20130111
  Transmission Date: 20140127
  Serious: Yes (Hospitalization, Other)
  Sender: FDA-Public Use
  Company Number: BR-PFIZER INC-2012314539

PATIENT
  Age: 53 Year
  Sex: Female

DRUGS (6)
  1. OLMETEC HCT [Suspect]
     Indication: HYPERTENSION
     Dosage: 20/12.5 MG (ONE HALF OF OLMETEC HCT 40/25 MG QD)
     Route: 048
     Dates: start: 20111010, end: 2012
  2. OLMETECANLO [Suspect]
     Indication: HYPERTENSION
     Dosage: 5/40 MG (QD)
     Route: 048
     Dates: start: 20120818, end: 20120911
  3. LIPITOR [Suspect]
     Indication: BLOOD CHOLESTEROL INCREASED
     Dosage: ONE TABLET OF 40MG AND HALF TABLET OF 20MG, EACH ONE ONCE DAILY
     Route: 048
     Dates: start: 20080512
  4. LIPITOR [Suspect]
     Dosage: ONE TABLET OF 40MG DAILY
     Dates: start: 2011
  5. ATORVASTATIN CALCIUM [Suspect]
     Indication: BLOOD CHOLESTEROL INCREASED
     Dosage: 40MG ONE TABLET A DAY
     Route: 048
     Dates: start: 2011
  6. ATORVASTATIN CALCIUM [Suspect]
     Dosage: 50 MG (50 MG,40 MG TABLET AND (1/2) 20 MG TABLET QD)
     Route: 048
     Dates: start: 20080512

REACTIONS (4)
  - Procedural haemorrhage [Recovered/Resolved]
  - Proteinuria [Unknown]
  - Blood urine present [Unknown]
  - VIIth nerve paralysis [Recovered/Resolved]
